FAERS Safety Report 20435161 (Version 2)
Quarter: 2025Q4

REPORT INFORMATION
  Report Type: Spontaneous
  Country: US (occurrence: US)
  Receive Date: 20220206
  Receipt Date: 20251117
  Transmission Date: 20260118
  Serious: No
  Sender: SANOFI AVENTIS
  Company Number: US-SA-SAC20220201001421

PATIENT
  Age: 81 Year
  Sex: Male
  Weight: 70.45 kg

DRUGS (1)
  1. DUPIXENT [Suspect]
     Active Substance: DUPILUMAB
     Indication: Illness
     Dosage: 300 MG
     Route: 058
     Dates: start: 202110

REACTIONS (1)
  - Product dose omission issue [Unknown]
